FAERS Safety Report 6332774-7 (Version None)
Quarter: 2009Q3

REPORT INFORMATION
  Report Type: 
  Country: None (occurrence: None)
  Receive Date: 20090828
  Receipt Date: 20090819
  Transmission Date: 20100115
  Serious: Yes (Hospitalization)
  Sender: FDA-Public Use
  Company Number: B0581041A

PATIENT
  Sex: Female
  Weight: 53 kg

DRUGS (4)
  1. VALTREX [Suspect]
     Indication: HERPES ZOSTER
     Dosage: 2G THREE TIMES PER DAY
     Route: 048
     Dates: start: 20090622, end: 20090624
  2. ZOVIRAX [Suspect]
     Indication: ENCEPHALITIS HERPES
     Dosage: 250MG PER DAY
     Route: 042
     Dates: start: 20090624, end: 20090627
  3. ROCEPHIN [Concomitant]
     Indication: PNEUMONIA
     Route: 042
     Dates: start: 20090624, end: 20090626
  4. ALASE [Concomitant]
     Indication: HERPES ZOSTER
     Route: 061
     Dates: start: 20090622, end: 20090624

REACTIONS (7)
  - ALTERED STATE OF CONSCIOUSNESS [None]
  - DEPRESSED LEVEL OF CONSCIOUSNESS [None]
  - EXTRAPYRAMIDAL DISORDER [None]
  - PYREXIA [None]
  - RENAL FAILURE ACUTE [None]
  - SOMNOLENCE [None]
  - TREMOR [None]
